FAERS Safety Report 24756889 (Version 1)
Quarter: 2024Q4

REPORT INFORMATION
  Report Type: Spontaneous
  Country: CA (occurrence: CA)
  Receive Date: 20241220
  Receipt Date: 20241220
  Transmission Date: 20250115
  Serious: Yes (Other)
  Sender: CSL BEHRING
  Company Number: CA-BEH-2024187434

PATIENT
  Age: 27 Year
  Sex: Female

DRUGS (11)
  1. HUMAN C1-ESTERASE INHIBITOR [Suspect]
     Active Substance: HUMAN C1-ESTERASE INHIBITOR
     Indication: Hereditary angioedema
     Dosage: UNK
     Route: 065
  2. HUMAN C1-ESTERASE INHIBITOR [Suspect]
     Active Substance: HUMAN C1-ESTERASE INHIBITOR
     Dosage: 1000 MG
     Route: 065
  3. ICATIBANT ACETATE [Suspect]
     Active Substance: ICATIBANT ACETATE
     Indication: Hereditary angioedema
     Dosage: UNK
     Route: 065
  4. ICATIBANT ACETATE [Suspect]
     Active Substance: ICATIBANT ACETATE
     Dosage: UNK
     Route: 065
  5. LANADELUMAB [Suspect]
     Active Substance: LANADELUMAB
     Indication: Hereditary angioedema
     Dosage: 300 MG, CYCLICAL
     Route: 058
  6. LANADELUMAB [Suspect]
     Active Substance: LANADELUMAB
     Dosage: 300 MG
     Route: 058
  7. LANADELUMAB [Suspect]
     Active Substance: LANADELUMAB
     Dosage: 300 MG
     Route: 058
  8. LANADELUMAB [Suspect]
     Active Substance: LANADELUMAB
     Dosage: 300 MG
     Route: 058
  9. TRANEXAMIC ACID [Suspect]
     Active Substance: TRANEXAMIC ACID
     Indication: Hereditary angioedema
     Dosage: 500 MG
     Route: 065
  10. OMALIZUMAB [Concomitant]
     Active Substance: OMALIZUMAB
     Dosage: 1 EVERY 1 MONTHS
     Route: 065
  11. OMALIZUMAB [Concomitant]
     Active Substance: OMALIZUMAB
     Dosage: 1 EVERY 1 MONTHS
     Route: 065

REACTIONS (9)
  - Hereditary angioedema [Recovered/Resolved]
  - Choking sensation [Recovered/Resolved]
  - Contusion [Recovered/Resolved]
  - Dysphagia [Recovered/Resolved]
  - Poor venous access [Recovered/Resolved]
  - Swelling face [Recovered/Resolved]
  - Systemic lupus erythematosus [Recovered/Resolved]
  - Therapeutic product effect decreased [Recovered/Resolved]
  - Off label use [Unknown]
